FAERS Safety Report 5703415-4 (Version None)
Quarter: 2008Q2

REPORT INFORMATION
  Report Type: 
  Country: None (occurrence: None)
  Receive Date: 20080411
  Receipt Date: 20080401
  Transmission Date: 20081010
  Serious: Yes (Hospitalization, Other)
  Sender: FDA-Public Use
  Company Number: US-PFIZER INC-2008029063

PATIENT
  Sex: Female

DRUGS (5)
  1. DILANTIN [Suspect]
     Indication: PETIT MAL EPILEPSY
  2. LISINOPRIL [Concomitant]
  3. COLACE [Concomitant]
  4. VICODIN [Concomitant]
  5. TYLENOL (CAPLET) [Concomitant]

REACTIONS (3)
  - CONVULSION [None]
  - FEMALE GENITAL TRACT FISTULA [None]
  - HIP SURGERY [None]
